FAERS Safety Report 15982556 (Version 3)
Quarter: 2020Q4

REPORT INFORMATION
  Report Type: Spontaneous
  Country: JP (occurrence: JP)
  Receive Date: 20190219
  Receipt Date: 20201228
  Transmission Date: 20210113
  Serious: Yes (Death)
  Sender: FDA-Public Use
  Company Number: JP-BAYER-2019-032840

PATIENT
  Age: 75 Year
  Sex: Male

DRUGS (3)
  1. XOFIGO [Suspect]
     Active Substance: RADIUM RA-223 DICHLORIDE
     Indication: HORMONE-REFRACTORY PROSTATE CANCER
     Dosage: 55 KBQ, ONCE
     Route: 042
     Dates: start: 20170313, end: 2017
  2. XOFIGO [Suspect]
     Active Substance: RADIUM RA-223 DICHLORIDE
     Indication: HORMONE-REFRACTORY PROSTATE CANCER
     Dosage: 55 KBQ, ONCE
     Route: 042
     Dates: start: 2017, end: 2017
  3. XOFIGO [Suspect]
     Active Substance: RADIUM RA-223 DICHLORIDE
     Indication: HORMONE-REFRACTORY PROSTATE CANCER
     Dosage: 55 KBQ, ONCE
     Route: 042
     Dates: start: 2017, end: 2017

REACTIONS (2)
  - General physical health deterioration [Fatal]
  - Hormone-refractory prostate cancer [Fatal]

NARRATIVE: CASE EVENT DATE: 20170929
